FAERS Safety Report 7558015-0 (Version None)
Quarter: 2011Q2

REPORT INFORMATION
  Report Type: 
  Country: None (occurrence: None)
  Receive Date: 20110620
  Receipt Date: 20110609
  Transmission Date: 20111010
  Serious: Yes (Other)
  Sender: FDA-Public Use
  Company Number: US-US-EMD SERONO, INC.-7064415

PATIENT
  Sex: Female

DRUGS (2)
  1. REBIF [Suspect]
     Indication: MULTIPLE SCLEROSIS
     Route: 058
     Dates: start: 20090323
  2. REBIF [Suspect]
     Route: 058
     Dates: end: 20110603

REACTIONS (2)
  - UTERINE MASS [None]
  - LIVER FUNCTION TEST ABNORMAL [None]
